FAERS Safety Report 25982655 (Version 1)
Quarter: 2025Q4

REPORT INFORMATION
  Report Type: Spontaneous
  Country: EU (occurrence: EU)
  Receive Date: 20251031
  Receipt Date: 20251031
  Transmission Date: 20260118
  Serious: No
  Sender: ALKEM
  Company Number: EU-ALKEM LABORATORIES LIMITED-DK-ALKEM-2025-03754

PATIENT
  Age: 22 Year
  Sex: Male

DRUGS (1)
  1. DIMETHYL FUMARATE [Suspect]
     Active Substance: DIMETHYL FUMARATE
     Indication: Product used for unknown indication
     Dosage: UNK (0.01 PERCENT PETROLEUM)
     Route: 065

REACTIONS (1)
  - Dermatitis contact [Recovered/Resolved]
